FAERS Safety Report 5748241-5 (Version None)
Quarter: 2008Q2

REPORT INFORMATION
  Report Type: 
  Country: None (occurrence: None)
  Receive Date: 20080523
  Receipt Date: 20080512
  Transmission Date: 20081010
  Serious: Yes (Hospitalization, Other)
  Sender: FDA-Public Use
  Company Number: MY-PFIZER INC-2007012651

PATIENT
  Sex: Male
  Weight: 77 kg

DRUGS (9)
  1. SU-011,248 [Suspect]
     Indication: METASTATIC RENAL CELL CARCINOMA
     Route: 048
  2. SU-011,248 [Suspect]
     Route: 048
  3. METHYLDOPA [Suspect]
     Route: 048
     Dates: start: 19960101, end: 20070713
  4. METFORMIN HCL [Concomitant]
     Route: 048
  5. GLICLAZIDE [Concomitant]
     Route: 048
  6. ATACAND [Concomitant]
     Route: 048
  7. FLUCONAZOLE [Concomitant]
     Route: 048
     Dates: start: 20070129, end: 20070201
  8. CIPROFLOXACIN HCL [Concomitant]
     Route: 048
     Dates: start: 20070129, end: 20070201
  9. PANTOPRAZOLE SODIUM [Concomitant]
     Dates: start: 20070111

REACTIONS (4)
  - ANAEMIA [None]
  - FALL [None]
  - FATIGUE [None]
  - VOMITING [None]
